FAERS Safety Report 9373810 (Version 1)
Quarter: 2013Q2

REPORT INFORMATION
  Report Type: Spontaneous
  Country: US (occurrence: US)
  Receive Date: 20130628
  Receipt Date: 20130628
  Transmission Date: 20140414
  Serious: Yes (Hospitalization)
  Sender: FDA-Public Use
  Company Number: PHHY2013US064219

PATIENT
  Age: 67 Year
  Sex: Female

DRUGS (8)
  1. METHOTREXATE [Suspect]
     Indication: RHEUMATOID ARTHRITIS
     Dosage: 25 MG, QW
  2. INFLIXIMAB [Suspect]
     Indication: RHEUMATOID ARTHRITIS
     Dosage: 300 MG (6.2 MG/KG) EVERY 8 WEEKS
  3. HYDROXYCHLOROQUINE [Concomitant]
     Dosage: 400 MG DAILY
     Route: 048
  4. FOLIC ACID [Concomitant]
     Dosage: 1 MG DAILY
     Route: 048
  5. LEVOTHYROXINE [Concomitant]
     Dosage: 88 UG DAILY
     Route: 048
  6. OXYCODONE [Concomitant]
     Dosage: 5 MG, UNK
  7. ESTRADIOL [Concomitant]
     Dosage: 0.5 MG DAILY
  8. MEDROXYPROGESTERON [Concomitant]
     Dosage: 2.5 MG DAILY
     Route: 048

REACTIONS (10)
  - Posterior reversible encephalopathy syndrome [Recovering/Resolving]
  - Disorientation [Recovered/Resolved]
  - Confusional state [Recovered/Resolved]
  - Amnesia [Recovered/Resolved]
  - Derealisation [Recovered/Resolved]
  - Grand mal convulsion [Recovered/Resolved]
  - Mental impairment [Recovered/Resolved]
  - Coma [Recovered/Resolved]
  - Myoclonus [Recovered/Resolved]
  - Cognitive disorder [Not Recovered/Not Resolved]
